FAERS Safety Report 12858005 (Version 2)
Quarter: 2019Q4

REPORT INFORMATION
  Report Type: Report from Study
  Country: US (occurrence: US)
  Receive Date: 20161018
  Receipt Date: 20191211
  Transmission Date: 20200122
  Serious: Yes (Other)
  Sender: FDA-Public Use
  Company Number: US-SA-2016SA001502

PATIENT
  Age: 56 Year
  Sex: Female

DRUGS (2)
  1. ALEMTUZUMAB [Suspect]
     Active Substance: ALEMTUZUMAB
     Dosage: 12 MG, QD
     Route: 042
     Dates: start: 20151214, end: 20151218
  2. ALEMTUZUMAB [Suspect]
     Active Substance: ALEMTUZUMAB
     Dosage: 12 MG, UNK
     Route: 042

REACTIONS (5)
  - Autoimmune disorder [Unknown]
  - Infusion related reaction [Unknown]
  - Neoplasm malignant [Unknown]
  - Cerebrovascular accident [Unknown]
  - Dizziness [Unknown]
